FAERS Safety Report 7481331-8 (Version None)
Quarter: 2011Q2

REPORT INFORMATION
  Report Type: 
  Country: None (occurrence: None)
  Receive Date: 20110516
  Receipt Date: 20110505
  Transmission Date: 20111010
  Serious: Yes (Hospitalization, Other)
  Sender: FDA-Public Use
  Company Number: FR-NOVOPROD-327857

PATIENT
  Age: 62 Year
  Sex: Female

DRUGS (9)
  1. FENOFIBRATE [Concomitant]
     Dosage: 200 MG, QD
     Route: 048
     Dates: start: 20040101
  2. TRIATEC                            /00116401/ [Concomitant]
     Dosage: 10 MG, QD
     Route: 048
     Dates: start: 20100609
  3. METFORMIN HCL [Concomitant]
     Indication: DIABETES MELLITUS
     Dosage: 2100 MG, QD
     Route: 048
     Dates: start: 20040101
  4. ACTOS [Concomitant]
     Dosage: 30 MG, QD
     Route: 048
  5. ASPIRIN [Concomitant]
     Dosage: 160 MG, QD
     Route: 048
  6. TRIATEC                            /00116401/ [Concomitant]
     Dosage: 5 MG, QD
     Route: 048
     Dates: start: 20040101, end: 20100101
  7. VICTOZA [Suspect]
     Indication: TYPE 2 DIABETES MELLITUS
     Dosage: 0.6 MG, QD
     Route: 058
     Dates: start: 20100608, end: 20100615
  8. VICTOZA [Suspect]
     Dosage: 1.2 MG, QD
     Route: 058
     Dates: start: 20100616, end: 20100801
  9. ESIDRIX [Concomitant]
     Dosage: 12.5 MG, QD
     Route: 048
     Dates: start: 20100611

REACTIONS (20)
  - ABNORMAL BEHAVIOUR [None]
  - WEIGHT DECREASED [None]
  - INTENTIONAL SELF-INJURY [None]
  - CHEST PAIN [None]
  - GASTRITIS [None]
  - LOGORRHOEA [None]
  - ANXIETY [None]
  - THYROID DISORDER [None]
  - HEADACHE [None]
  - ABDOMINAL PAIN [None]
  - CONSTIPATION [None]
  - DEPRESSION [None]
  - SLEEP DISORDER [None]
  - VOMITING [None]
  - NECK PAIN [None]
  - DECREASED APPETITE [None]
  - SUBILEUS [None]
  - SUICIDE ATTEMPT [None]
  - DIZZINESS [None]
  - DIVERTICULUM INTESTINAL [None]
